FAERS Safety Report 9752909 (Version 1)
Quarter: 2013Q4

REPORT INFORMATION
  Report Type: Spontaneous
  Country: US (occurrence: US)
  Receive Date: 20131213
  Receipt Date: 20131213
  Transmission Date: 20140711
  Serious: No
  Sender: FDA-Public Use
  Company Number: US-GLAXOSMITHKLINE-A1028917A

PATIENT
  Sex: Male

DRUGS (1)
  1. ARZERRA [Suspect]
     Route: 042
     Dates: start: 20130627

REACTIONS (5)
  - Rash [Unknown]
  - Nervousness [Unknown]
  - Hypersensitivity [Unknown]
  - Flushing [Unknown]
  - Chills [Unknown]
